APPROVED DRUG PRODUCT: ENDEP
Active Ingredient: AMITRIPTYLINE HYDROCHLORIDE
Strength: 40MG/ML **Federal Register determination that product was not discontinued or withdrawn for safety or effectiveness reasons**
Dosage Form/Route: CONCENTRATE;ORAL
Application: A085749 | Product #001
Applicant: HOFFMANN LA ROCHE INC
Approved: Approved Prior to Jan 1, 1982 | RLD: Yes | RS: No | Type: DISCN